FAERS Safety Report 20655890 (Version 1)
Quarter: 2022Q1

REPORT INFORMATION
  Report Type: Spontaneous
  Country: CN (occurrence: CN)
  Receive Date: 20220330
  Receipt Date: 20220330
  Transmission Date: 20220423
  Serious: Yes (Hospitalization, Other)
  Sender: FDA-Public Use
  Company Number: CN-009507513-2203CHN008632

PATIENT
  Age: 50 Year
  Sex: Female
  Weight: 67.2 kg

DRUGS (4)
  1. KEYTRUDA [Suspect]
     Active Substance: PEMBROLIZUMAB
     Indication: Malignant melanoma
     Dosage: 200 MG (ALSO REPORTED AS 100 MG), FREQUENCY: ONCE (ALSO REPORTED AS Q21D)
     Dates: start: 20220218, end: 20220218
  2. CARBOPLATIN [Suspect]
     Active Substance: CARBOPLATIN
     Indication: Chemotherapy
     Dosage: 0.4 G, FREQUENCY: ONCE (ALSO REPORTED AS Q21D)
     Route: 041
     Dates: start: 20220221, end: 20220221
  3. PACLITAXEL [Suspect]
     Active Substance: PACLITAXEL
     Indication: Chemotherapy
     Dosage: 240 MG, FREQUENCY: ONCE (ALSO REPORTED AS Q21D)
     Dates: start: 20220221, end: 20220221
  4. ENDOSTATIN [Suspect]
     Active Substance: ENDOSTATIN
     Indication: Targeted cancer therapy
     Dosage: 210 MG, FREQUENCY: ONCE (ALSO REPORTED AS Q21D)
     Dates: start: 20220218, end: 20220221

REACTIONS (1)
  - Myelosuppression [Recovering/Resolving]

NARRATIVE: CASE EVENT DATE: 20220223
